FAERS Safety Report 8924314 (Version 1)
Quarter: 2012Q4

REPORT INFORMATION
  Report Type: 
  Country: MU (occurrence: MU)
  Receive Date: 20121126
  Receipt Date: 20121126
  Transmission Date: 20130627
  Serious: Yes (Hospitalization)
  Sender: FDA-Public Use
  Company Number: MU-GLAXOSMITHKLINE-B0845350A

PATIENT
  Age: 48 Year
  Sex: Female

DRUGS (1)
  1. WELLBUTRIN [Suspect]
     Indication: BIPOLAR I DISORDER
     Dosage: 150MG Unknown
     Route: 065
     Dates: start: 20121011, end: 20121015

REACTIONS (3)
  - Hypomania [Recovered/Resolved]
  - Mania [Recovering/Resolving]
  - Logorrhoea [Not Recovered/Not Resolved]
